FAERS Safety Report 6398055-0 (Version None)
Quarter: 2009Q4

REPORT INFORMATION
  Report Type: 
  Country: None (occurrence: None)
  Receive Date: 20091013
  Receipt Date: 20091006
  Transmission Date: 20100525
  Serious: Yes (Death, Hospitalization)
  Sender: FDA-Public Use
  Company Number: FR-ROCHE-661357

PATIENT
  Sex: Female

DRUGS (5)
  1. CAPECITABINE [Suspect]
     Indication: ADENOCARCINOMA PANCREAS
     Route: 065
     Dates: start: 20090402, end: 20090916
  2. ERLOTINIB [Suspect]
     Indication: ADENOCARCINOMA PANCREAS
     Dosage: DOSE: 100, UNIT: MG/J
     Route: 065
     Dates: start: 20090402, end: 20090916
  3. GEMCITABINE [Suspect]
     Indication: ADENOCARCINOMA PANCREAS
     Route: 042
     Dates: start: 20090402, end: 20090916
  4. IMODIUM [Concomitant]
  5. PRIMPERAN [Concomitant]

REACTIONS (1)
  - FEBRILE BONE MARROW APLASIA [None]
